FAERS Safety Report 25946637 (Version 2)
Quarter: 2025Q4

REPORT INFORMATION
  Report Type: Spontaneous
  Country: EU (occurrence: EU)
  Receive Date: 20251022
  Receipt Date: 20251105
  Transmission Date: 20260119
  Serious: Yes (Other)
  Sender: ABBVIE
  Company Number: EU-TAKEDA-2025TUS080104

PATIENT
  Age: 61 Year
  Sex: Male

DRUGS (8)
  1. LEUPROLIDE [Suspect]
     Active Substance: LEUPROLIDE
     Indication: Metastases to bone
     Route: 065
     Dates: start: 202004
  2. LEUPROLIDE [Suspect]
     Active Substance: LEUPROLIDE
     Indication: Hormone therapy
  3. LEUPROLIDE [Suspect]
     Active Substance: LEUPROLIDE
     Indication: Metastases to lymph nodes
  4. LEUPROLIDE [Suspect]
     Active Substance: LEUPROLIDE
     Indication: Prostate cancer stage IV
  5. ENZALUTAMIDE [Suspect]
     Active Substance: ENZALUTAMIDE
     Indication: Metastases to bone
     Route: 065
     Dates: start: 202110
  6. DENOSUMAB [Suspect]
     Active Substance: DENOSUMAB
     Indication: Metastases to bone
     Route: 065
     Dates: start: 202007
  7. ABIRATERONE [Suspect]
     Active Substance: ABIRATERONE
     Indication: Metastases to bone
     Route: 065
     Dates: start: 2024
  8. TAXOTERE [Suspect]
     Active Substance: DOCETAXEL
     Indication: Metastases to lymph nodes
     Route: 065

REACTIONS (3)
  - Hereditary optic atrophy [Recovering/Resolving]
  - Drug ineffective [Unknown]
  - Disease progression [Unknown]

NARRATIVE: CASE EVENT DATE: 20230801
